FAERS Safety Report 5253398-9 (Version None)
Quarter: 2007Q1

REPORT INFORMATION
  Report Type: 
  Country: None (occurrence: None)
  Receive Date: 20070301
  Receipt Date: 20070226
  Transmission Date: 20070707
  Serious: Yes (Death, Life-Threatening)
  Sender: FDA-Public Use
  Company Number: US-SANOFI-SYNTHELABO-D01200701117

PATIENT
  Sex: Male
  Weight: 99.1 kg

DRUGS (11)
  1. ELITEK [Suspect]
     Indication: TUMOUR LYSIS SYNDROME
     Route: 042
     Dates: start: 20070212, end: 20070213
  2. IDARUBICIN HCL [Concomitant]
     Route: 042
     Dates: start: 20070212, end: 20070212
  3. CYTARABINE [Concomitant]
     Route: 042
     Dates: start: 20070212, end: 20070212
  4. CYTARABINE [Concomitant]
     Route: 042
     Dates: start: 20070213, end: 20070213
  5. NEXIUM [Concomitant]
     Dosage: UNK
  6. SYNTHROID [Concomitant]
     Dosage: UNK
  7. ZANAFLEX [Concomitant]
     Dosage: UNK
  8. ELAVIL [Concomitant]
     Dosage: UNK
  9. NEURONTIN [Concomitant]
     Dosage: UNK
  10. ROPINIROLE HCL [Concomitant]
     Dates: end: 20070213
  11. AMITRIPTYLINE HCL [Concomitant]
     Dates: start: 20070211, end: 20070212

REACTIONS (2)
  - HYPERBILIRUBINAEMIA [None]
  - SEPTIC SHOCK [None]
